FAERS Safety Report 15157590 (Version 3)
Quarter: 2019Q1

REPORT INFORMATION
  Report Type: Report from Study
  Country: CA (occurrence: CA)
  Receive Date: 20180718
  Receipt Date: 20190221
  Transmission Date: 20190417
  Serious: Yes (Other)
  Sender: FDA-Public Use
  Company Number: CA-ROCHE-2113742

PATIENT
  Sex: Female

DRUGS (17)
  1. ACTEMRA [Suspect]
     Active Substance: TOCILIZUMAB
     Dosage: 80 MG
     Route: 042
     Dates: start: 20160329
  2. ACTEMRA [Suspect]
     Active Substance: TOCILIZUMAB
     Dosage: 80 MG/4 ML
     Route: 042
     Dates: start: 20150601
  3. PANTOPRAZOLE [Concomitant]
     Active Substance: PANTOPRAZOLE
  4. ACTONEL [Concomitant]
     Active Substance: RISEDRONATE SODIUM
  5. PANTOLOC [Concomitant]
     Active Substance: PANTOPRAZOLE SODIUM
  6. TYLENOL [Concomitant]
     Active Substance: ACETAMINOPHEN
     Route: 065
  7. DIOVAN [Concomitant]
     Active Substance: VALSARTAN
  8. ZOPICLONE [Concomitant]
     Active Substance: ZOPICLONE
  9. SYNTHROID [Concomitant]
     Active Substance: LEVOTHYROXINE SODIUM
  10. ADVIL [Concomitant]
     Active Substance: IBUPROFEN
     Route: 065
  11. CELEBREX [Concomitant]
     Active Substance: CELECOXIB
  12. AZARGA [Concomitant]
     Active Substance: BRINZOLAMIDE\TIMOLOL MALEATE
  13. ALPHAGAN P [Concomitant]
     Active Substance: BRIMONIDINE TARTRATE
  14. ACTEMRA [Suspect]
     Active Substance: TOCILIZUMAB
     Indication: RHEUMATOID ARTHRITIS
     Route: 042
     Dates: start: 20150817
  15. VITAMIN B12 [Concomitant]
     Active Substance: CYANOCOBALAMIN
     Route: 065
  16. ALEVE [Concomitant]
     Active Substance: NAPROXEN SODIUM
     Route: 065
  17. TRAVOPROST. [Concomitant]
     Active Substance: TRAVOPROST

REACTIONS (2)
  - Cataract [Not Recovered/Not Resolved]
  - Glaucoma [Not Recovered/Not Resolved]

NARRATIVE: CASE EVENT DATE: 2018
